FAERS Safety Report 24136220 (Version 4)
Quarter: 2024Q4

REPORT INFORMATION
  Report Type: Spontaneous
  Country: US (occurrence: US)
  Receive Date: 20240725
  Receipt Date: 20241217
  Transmission Date: 20250115
  Serious: No
  Sender: PFIZER
  Company Number: US-PFIZER INC-PV202300038245

PATIENT
  Age: 75 Year
  Sex: Female

DRUGS (4)
  1. IBRANCE [Suspect]
     Active Substance: PALBOCICLIB
     Dosage: 125 MG
  2. IBRANCE [Suspect]
     Active Substance: PALBOCICLIB
     Dosage: 100 MG, CYCLIC (1 TABLET /100 MG, TAKE AT THE SAME TIME DAILY FOR 5 DAYS STRAIGHT THEN 2 DAYS OFF)
     Route: 048
  3. IBRANCE [Suspect]
     Active Substance: PALBOCICLIB
     Dosage: 75 MG, CYCLIC (1 TAB (75 MG TOTAL) AT SAME TIME DAILY ON DAYS 1-21 OF EACH 28 DAY CYCLE).
     Route: 048
  4. IBRANCE [Suspect]
     Active Substance: PALBOCICLIB
     Dosage: 75 MG, CYCLIC, 1 TABLET DAILY, EVERY 28 DAYS (5 DAYS ON, 2 DAYS OFF)
     Route: 048

REACTIONS (2)
  - Full blood count abnormal [Unknown]
  - Off label use [Unknown]
